FAERS Safety Report 17526978 (Version 1)
Quarter: 2020Q1

REPORT INFORMATION
  Report Type: Spontaneous
  Country: DK (occurrence: DK)
  Receive Date: 20200311
  Receipt Date: 20200311
  Transmission Date: 20200409
  Serious: Yes (Life-Threatening, Hospitalization)
  Sender: FDA-Public Use
  Company Number: DK-JNJFOC-20200300966

PATIENT
  Age: 91 Year
  Sex: Male

DRUGS (6)
  1. LANTUS [Concomitant]
     Active Substance: INSULIN GLARGINE
     Indication: DIABETES MELLITUS
     Dosage: 72 IU, QD (START DATE UNKNOWN, BUT AT LEAST SINCE 20-MAJ-2019.)
  2. RIVAROXABAN [Suspect]
     Active Substance: RIVAROXABAN
     Indication: THROMBOSIS PROPHYLAXIS
     Dosage: STRENGTH: 15 MG
     Route: 048
     Dates: start: 20190405, end: 20200213
  3. FURIX [Concomitant]
     Indication: DIURETIC THERAPY
     Dosage: 80 MG, QD
     Route: 048
     Dates: start: 20131220
  4. AMLODIPIN SANDOZ [Concomitant]
     Indication: BLOOD PRESSURE MEASUREMENT
     Dosage: 5 MG, QD
     Route: 048
  5. DIGOXIN. [Concomitant]
     Active Substance: DIGOXIN
     Indication: HEART RATE IRREGULAR
     Dosage: 125  G, QD
     Route: 048
     Dates: start: 20190406
  6. PARACETAMOL ORIFARM [Concomitant]
     Indication: PAIN
     Dosage: 4000 MG, QD (START DATE UNKNOWN, BUT AT LEAST SINCE 14-MAR-2018)
     Route: 048

REACTIONS (3)
  - Visual impairment [Unknown]
  - Cerebral haemorrhage [Unknown]
  - Headache [Unknown]

NARRATIVE: CASE EVENT DATE: 20200212
